FAERS Safety Report 13900519 (Version 4)
Quarter: 2017Q4

REPORT INFORMATION
  Report Type: Spontaneous
  Country: IT (occurrence: IT)
  Receive Date: 20170824
  Receipt Date: 20171011
  Transmission Date: 20180320
  Serious: Yes (Hospitalization, Other)
  Sender: FDA-Public Use
  Company Number: IT-PFIZER INC-2017365841

PATIENT
  Age: 67 Year
  Sex: Female

DRUGS (5)
  1. TAVOR (LORAZEPAM) [Suspect]
     Active Substance: LORAZEPAM
     Indication: DRUG USE DISORDER
     Dosage: 40 DF, TOTAL
     Route: 048
     Dates: start: 20170812, end: 20170812
  2. BISOPROLOL FUMARATE. [Suspect]
     Active Substance: BISOPROLOL FUMARATE
     Indication: DRUG USE DISORDER
     Dosage: 40 DF, TOTAL
     Route: 048
     Dates: start: 20170812, end: 20170812
  3. NORVASC [Suspect]
     Active Substance: AMLODIPINE BESYLATE
     Indication: DRUG USE DISORDER
     Dosage: 54 DF, TOTAL
     Route: 048
     Dates: start: 20170812, end: 20170812
  4. INVEGA [Suspect]
     Active Substance: PALIPERIDONE
     Indication: DRUG USE DISORDER
     Dosage: 45 DF, TOTAL
     Route: 048
     Dates: start: 20170812, end: 20170812
  5. TRIATEC [Suspect]
     Active Substance: RAMIPRIL
     Indication: DRUG USE DISORDER
     Dosage: 14 DF, TOTAL
     Route: 048
     Dates: start: 20170812, end: 20170812

REACTIONS (3)
  - Drug abuse [Recovering/Resolving]
  - Loss of consciousness [Recovering/Resolving]
  - Hypotension [Recovering/Resolving]

NARRATIVE: CASE EVENT DATE: 20170812
